FAERS Safety Report 8294510-7 (Version None)
Quarter: 2012Q2

REPORT INFORMATION
  Report Type: 
  Country: None (occurrence: None)
  Receive Date: 20120418
  Receipt Date: 20120413
  Transmission Date: 20120825
  Serious: Yes (Life-Threatening, Hospitalization, Other)
  Sender: FDA-Public Use
  Company Number: AU-NAPPMUNDI-USA-2012-0081815

PATIENT
  Sex: Female
  Weight: 50 kg

DRUGS (6)
  1. LORATADINE [Concomitant]
     Dosage: UNK
  2. NEXIUM [Concomitant]
     Dosage: UNK
  3. MS CONTIN [Suspect]
     Indication: PRODUCT USED FOR UNKNOWN INDICATION
     Dosage: 30 MG, BID
     Dates: start: 20111004, end: 20120101
  4. PREDNISOLONE [Concomitant]
     Dosage: UNK
  5. NALOXONE [Suspect]
     Indication: PULMONARY FIBROSIS
     Dosage: 40/20 MG TAB DAILY
     Route: 048
     Dates: start: 20120131, end: 20120131
  6. SILDENAFIL [Concomitant]
     Indication: PRODUCT USED FOR UNKNOWN INDICATION
     Dosage: UNK
     Dates: start: 20090101

REACTIONS (13)
  - DYSPHORIA [None]
  - DRUG WITHDRAWAL SYNDROME [None]
  - DIARRHOEA [None]
  - HYPERBILIRUBINAEMIA [None]
  - MALAISE [None]
  - CHILLS [None]
  - ANXIETY [None]
  - NAUSEA [None]
  - DELIRIUM [None]
  - PAIN [None]
  - VOMITING [None]
  - FEELING COLD [None]
  - YAWNING [None]
